FAERS Safety Report 7930254-6 (Version None)
Quarter: 2011Q4

REPORT INFORMATION
  Report Type: 
  Country: None (occurrence: None)
  Receive Date: 20111121
  Receipt Date: 20110816
  Transmission Date: 20120403
  Serious: No
  Sender: FDA-Public Use
  Company Number: US-BAYER-2011-078663

PATIENT
  Sex: Female

DRUGS (2)
  1. ALEVE (CAPLET) [Suspect]
     Dosage: 1 DF, UNK
     Route: 048
  2. ALEVE (CAPLET) [Suspect]
     Dosage: 1 DF, UNK
     Route: 048

REACTIONS (4)
  - ABDOMINAL PAIN UPPER [None]
  - MALAISE [None]
  - HYPERHIDROSIS [None]
  - SENSATION OF FOREIGN BODY [None]
